FAERS Safety Report 8607297 (Version 3)
Quarter: 2014Q1

REPORT INFORMATION
  Report Type: Spontaneous
  Country: US (occurrence: US)
  Receive Date: 20120611
  Receipt Date: 20140117
  Transmission Date: 20141002
  Serious: Yes (Other)
  Sender: FDA-Public Use
  Company Number: US-ASTRAZENECA-2012SE34719

PATIENT
  Age: 19551 Day
  Sex: Male
  Weight: 79.4 kg

DRUGS (9)
  1. NEXIUM [Suspect]
     Indication: GASTROOESOPHAGEAL REFLUX DISEASE
     Route: 048
     Dates: start: 20060114
  2. NEXIUM [Suspect]
     Indication: GASTROOESOPHAGEAL REFLUX DISEASE
     Route: 048
     Dates: start: 2007, end: 2011
  3. PEPCID [Concomitant]
     Indication: DYSPEPSIA
     Dates: start: 2011
  4. ZANTAC OTC [Concomitant]
     Indication: DYSPEPSIA
  5. TUMS [Concomitant]
  6. ROLAIDS [Concomitant]
  7. ABILIFY [Concomitant]
     Indication: DEPRESSION
  8. TRAZODONE [Concomitant]
     Indication: SLEEP DISORDER
  9. OXYCODONE [Concomitant]

REACTIONS (16)
  - Joint dislocation [Unknown]
  - Osteoporosis [Unknown]
  - Bone disorder [Unknown]
  - Clavicle fracture [Unknown]
  - Upper limb fracture [Unknown]
  - Fall [Unknown]
  - Sarcoidosis [Unknown]
  - Osteopenia [Unknown]
  - Osteoarthritis [Unknown]
  - Ankle fracture [Unknown]
  - Rotator cuff syndrome [Unknown]
  - Spinal osteoarthritis [Unknown]
  - Rib fracture [Unknown]
  - Humerus fracture [Unknown]
  - Foot fracture [Unknown]
  - Depression [Unknown]
